FAERS Safety Report 5374810-0 (Version None)
Quarter: 2007Q2

REPORT INFORMATION
  Report Type: 
  Country: None (occurrence: None)
  Receive Date: 20070629
  Receipt Date: 20070626
  Transmission Date: 20071010
  Serious: Yes (Other)
  Sender: FDA-Public Use
  Company Number: A0660249A

PATIENT
  Sex: Male

DRUGS (2)
  1. COREG [Suspect]
     Dosage: 6.25MG TWICE PER DAY
     Route: 048
     Dates: start: 20060401
  2. DIGITEK [Concomitant]

REACTIONS (3)
  - EYE HAEMORRHAGE [None]
  - EYE PRURITUS [None]
  - OCULAR HYPERAEMIA [None]
